FAERS Safety Report 14538857 (Version 1)
Quarter: 2018Q1

REPORT INFORMATION
  Report Type: Spontaneous
  Country: US (occurrence: US)
  Receive Date: 20180216
  Receipt Date: 20180216
  Transmission Date: 20180509
  Serious: No
  Sender: FDA-Public Use
  Company Number: US-PFIZER INC-2018061243

PATIENT
  Age: 4 Decade
  Sex: Female
  Weight: 83.9 kg

DRUGS (3)
  1. DIFLUCAN [Suspect]
     Active Substance: FLUCONAZOLE
     Indication: FUNGAL INFECTION
     Dosage: UNK
  2. BENADRYL [Suspect]
     Active Substance: DIPHENHYDRAMINE HYDROCHLORIDE
     Dosage: UNK
     Dates: start: 20180126
  3. DIFLUCAN [Suspect]
     Active Substance: FLUCONAZOLE
     Dosage: 1 DF, UNK
     Dates: start: 20180125

REACTIONS (8)
  - Hypersensitivity [Unknown]
  - Chest pain [Recovered/Resolved]
  - Dyspnoea [Recovered/Resolved]
  - Condition aggravated [Unknown]
  - Fungal infection [Not Recovered/Not Resolved]
  - Urticaria [Not Recovered/Not Resolved]
  - Tachycardia [Unknown]
  - Pruritus [Not Recovered/Not Resolved]

NARRATIVE: CASE EVENT DATE: 201801
